FAERS Safety Report 17134399 (Version 1)
Quarter: 2019Q4

REPORT INFORMATION
  Report Type: Spontaneous
  Country: US (occurrence: BR)
  Receive Date: 20191210
  Receipt Date: 20191210
  Transmission Date: 20200122
  Serious: Yes (Life-Threatening, Hospitalization, Other)
  Sender: FDA-Public Use
  Company Number: US-SUNOVION-2016SUN003639

PATIENT
  Age: 56 Year
  Sex: Female

DRUGS (10)
  1. COMBIVENT RESPIMAT [Concomitant]
     Active Substance: ALBUTEROL SULFATE\IPRATROPIUM BROMIDE
     Indication: ASTHMA
     Dosage: 2 JETS A DAY
     Route: 048
  2. RIVOTRIL [Concomitant]
     Active Substance: CLONAZEPAM
     Indication: PANIC DISORDER
     Dosage: 17 GTT, BID
     Route: 048
  3. CREON [Concomitant]
     Active Substance: PANCRELIPASE AMYLASE\PANCRELIPASE LIPASE\PANCRELIPASE PROTEASE
     Indication: PANCREATIC DISORDER
     Dosage: 6 DF, QD
     Route: 048
  4. GLYCOPYRROLATE. [Suspect]
     Active Substance: GLYCOPYRROLATE
     Indication: EMPHYSEMA
  5. TEGRETOL [Suspect]
     Active Substance: CARBAMAZEPINE
     Indication: SEIZURE
     Dosage: 2 DF, QD (60 TABLETS)
     Route: 048
  6. GLYCOPYRROLATE. [Suspect]
     Active Substance: GLYCOPYRROLATE
     Indication: CHRONIC OBSTRUCTIVE PULMONARY DISEASE
     Dosage: UNK (ONCE AT NIGHT)
     Route: 065
  7. GLYCOPYRROLATE. [Suspect]
     Active Substance: GLYCOPYRROLATE
     Indication: ASTHMA
  8. SERETIDE [Concomitant]
     Active Substance: FLUTICASONE PROPIONATE\SALMETEROL XINAFOATE
     Indication: ASTHMA
     Dosage: 2 JETS A DAY, 1 YEAR AGO
     Route: 048
  9. RIVOTRIL [Concomitant]
     Active Substance: CLONAZEPAM
     Indication: DEPRESSION
  10. SYMBICORT [Concomitant]
     Active Substance: BUDESONIDE\FORMOTEROL FUMARATE DIHYDRATE
     Indication: PRODUCT USED FOR UNKNOWN INDICATION
     Dosage: UNK (ONCE AT MORNING)
     Route: 065

REACTIONS (13)
  - Feeling abnormal [Unknown]
  - Chronic obstructive pulmonary disease [Recovering/Resolving]
  - Dyspnoea [Recovering/Resolving]
  - Nervousness [Unknown]
  - Pulmonary oedema [Recovering/Resolving]
  - Pulmonary fibrosis [Unknown]
  - Pancreatic calcification [Recovering/Resolving]
  - Asthma [Unknown]
  - Respiratory disorder [Recovering/Resolving]
  - Weight increased [Unknown]
  - Headache [Unknown]
  - Hypertension [Recovering/Resolving]
  - Cardiac arrest [Unknown]

NARRATIVE: CASE EVENT DATE: 2015
